FAERS Safety Report 15801721 (Version 3)
Quarter: 2019Q1

REPORT INFORMATION
  Report Type: Spontaneous
  Country: US (occurrence: US)
  Receive Date: 20190109
  Receipt Date: 20190307
  Transmission Date: 20190417
  Serious: No
  Sender: FDA-Public Use
  Company Number: US-PFIZER INC-2018533643

PATIENT
  Age: 64 Year
  Sex: Male

DRUGS (11)
  1. FLECTOR [Suspect]
     Active Substance: DICLOFENAC EPOLAMINE
     Indication: PAIN
  2. FLECTOR [Suspect]
     Active Substance: DICLOFENAC EPOLAMINE
     Indication: GROWTH HORMONE DEFICIENCY
  3. FLECTOR [Suspect]
     Active Substance: DICLOFENAC EPOLAMINE
     Indication: BACK PAIN
  4. HYDROCODONE [Concomitant]
     Active Substance: HYDROCODONE
     Indication: OSTEOARTHRITIS
     Dosage: UNK (10/325MG, 1 TABLET BY MOUTH EVERY 4-6 HOURS)
     Route: 048
  5. HYDROCODONE/ACETAMINOPHEN [Concomitant]
     Active Substance: ACETAMINOPHEN\HYDROCODONE
     Indication: PAIN
     Dosage: UNK, AS NEEDED [HYDROCODONE BITARTRATE: 7.5 MG/ PARACETAMOL: 325 MG] 3-4 TABS/DAY
  6. FLECTOR [Suspect]
     Active Substance: DICLOFENAC EPOLAMINE
     Indication: NERVE INJURY
  7. HYDROCODONE [Concomitant]
     Active Substance: HYDROCODONE
     Indication: NERVE INJURY
     Dosage: UNK (7.5/325MG T, 2 TABLETS BY MOUTH IN THE MORNING AND 2 -3 TABLETS BY MOUTH IN THE EVENING)
     Route: 048
  8. HYDROCODONE [Concomitant]
     Active Substance: HYDROCODONE
     Indication: PAIN
  9. FLECTOR [Suspect]
     Active Substance: DICLOFENAC EPOLAMINE
     Indication: SPINAL CORD DISORDER
     Dosage: UNK, 1X/DAY (1 PATCH AT NIGHT)
  10. OXYCODONE AND ACETAMINOPHEN [Concomitant]
     Active Substance: ACETAMINOPHEN\OXYCODONE HYDROCHLORIDE
     Indication: PAIN
     Dosage: UNK, 1X/DAY [OXYCODONE HYDROCHLORIDE: 10 MG/ PARACETAMOL: 325 MG]1 TAB HS (BEFORE BAD)
  11. FLECTOR [Suspect]
     Active Substance: DICLOFENAC EPOLAMINE
     Indication: OSTEOARTHRITIS
     Dosage: UNK (UPTO 3 PATCHES 12 DEGREE ON 12 DEGREE OFF)
     Route: 062
     Dates: start: 20181217, end: 20181217

REACTIONS (4)
  - Product physical issue [Unknown]
  - Poor quality product administered [Unknown]
  - Drug ineffective [Unknown]
  - Malaise [Unknown]

NARRATIVE: CASE EVENT DATE: 20181217
